FAERS Safety Report 9079172 (Version 4)
Quarter: 2013Q2

REPORT INFORMATION
  Report Type: Report from Study
  Country: JP (occurrence: JP)
  Receive Date: 20130125
  Receipt Date: 20130606
  Transmission Date: 20140414
  Serious: Yes (Death)
  Sender: FDA-Public Use
  Company Number: JP-GILEAD-2013-0068067

PATIENT
  Age: 14 Year
  Sex: Female

DRUGS (7)
  1. AMBRISENTAN [Suspect]
     Indication: PULMONARY ARTERIAL HYPERTENSION
     Dosage: 2.5 MG, QD
     Route: 048
     Dates: start: 20130105, end: 20130111
  2. ALDACTONE A [Concomitant]
     Indication: PULMONARY HYPERTENSION
     Route: 048
     Dates: end: 20130113
  3. FUROSEMIDE [Concomitant]
     Route: 048
     Dates: end: 20130113
  4. RENIVACE [Concomitant]
     Route: 048
     Dates: end: 20130113
  5. BUFFERIN                           /00002701/ [Concomitant]
     Route: 048
     Dates: end: 20130113
  6. MILRILA [Concomitant]
     Route: 042
     Dates: start: 20130108, end: 20130113
  7. HANP [Concomitant]
     Route: 042
     Dates: start: 20130110, end: 20130113

REACTIONS (3)
  - Pulmonary oedema [Fatal]
  - Generalised oedema [Fatal]
  - Cardiac failure congestive [Fatal]
